FAERS Safety Report 24652636 (Version 1)
Quarter: 2024Q4

REPORT INFORMATION
  Report Type: Spontaneous
  Country: US (occurrence: None)
  Receive Date: 20241122
  Receipt Date: 20241122
  Transmission Date: 20250115
  Serious: Yes (Hospitalization)
  Sender: Public
  Company Number: None

PATIENT
  Sex: Female

DRUGS (1)
  1. MIGLUSTAT [Suspect]
     Active Substance: MIGLUSTAT
     Indication: Niemann-Pick disease
     Dosage: 200 MG 3 TIMES A DAY ORAL
     Route: 048
     Dates: start: 202307

REACTIONS (1)
  - Complication associated with device [None]
